FAERS Safety Report 4821638-3 (Version None)
Quarter: 2005Q4

REPORT INFORMATION
  Report Type: 
  Country: None (occurrence: None)
  Receive Date: 20051107
  Receipt Date: 20041129
  Transmission Date: 20060501
  Serious: Yes (Death, Hospitalization, Disabling)
  Sender: FDA-Public Use
  Company Number: US-MERCK-0411USA04107

PATIENT
  Age: 63 Year
  Sex: Female
  Weight: 77 kg

DRUGS (5)
  1. VIOXX [Suspect]
     Indication: RHEUMATOID ARTHRITIS
     Route: 048
     Dates: start: 20030101, end: 20030801
  2. VIOXX [Suspect]
     Route: 048
     Dates: start: 20030901, end: 20031201
  3. ACCUPRIL [Concomitant]
     Route: 065
  4. CAPOTEN [Concomitant]
     Indication: HYPERTENSION
     Route: 065
  5. NORVASC [Concomitant]
     Route: 065

REACTIONS (12)
  - ABDOMINAL PAIN UPPER [None]
  - ANXIETY [None]
  - ARTHROPATHY [None]
  - CEREBROVASCULAR ACCIDENT [None]
  - DEATH [None]
  - DEPRESSION [None]
  - DEPRESSION SUICIDAL [None]
  - DIARRHOEA [None]
  - DYSPEPSIA [None]
  - GASTROINTESTINAL OBSTRUCTION [None]
  - NAUSEA [None]
  - VOMITING [None]
